FAERS Safety Report 15215195 (Version 4)
Quarter: 2018Q4

REPORT INFORMATION
  Report Type: Report from Study
  Country: ES (occurrence: ES)
  Receive Date: 20180730
  Receipt Date: 20181030
  Transmission Date: 20190204
  Serious: Yes (Death)
  Sender: FDA-Public Use
  Company Number: ES-PFIZER INC-2018304341

PATIENT
  Age: 51 Year
  Sex: Male

DRUGS (17)
  1. CEFTOLOZANE/TAZOBACTAM [Suspect]
     Active Substance: CEFTOLOZANE SULFATE\TAZOBACTAM SODIUM
     Indication: EMPYEMA
  2. FLUCONAZOLE. [Concomitant]
     Active Substance: FLUCONAZOLE
     Dosage: UNK
  3. SOMATOSTATIN [Concomitant]
     Active Substance: SOMATOSTATIN
     Dosage: UNK
  4. AMIKACIN. [Suspect]
     Active Substance: AMIKACIN
     Indication: EMPYEMA
  5. CEFTOLOZANE/TAZOBACTAM [Suspect]
     Active Substance: CEFTOLOZANE SULFATE\TAZOBACTAM SODIUM
     Indication: PNEUMONIA
     Dosage: UNK
     Dates: start: 20170105
  6. PANTOPRAZOLE [Concomitant]
     Active Substance: PANTOPRAZOLE
     Dosage: UNK
  7. MAGNESIUM SULPHATE [MAGNESIUM SULFATE] [Concomitant]
     Dosage: UNK
  8. MEROPENEM. [Suspect]
     Active Substance: MEROPENEM
     Indication: PNEUMONIA
     Dosage: UNK
     Route: 042
     Dates: start: 20170105
  9. MEROPENEM. [Suspect]
     Active Substance: MEROPENEM
     Indication: EVIDENCE BASED TREATMENT
  10. AVIBACTAM SODIUM/CEFTAZIDIME PENTAHYDRATE [Suspect]
     Active Substance: AVIBACTAM SODIUM\CEFTAZIDIME
     Indication: EMPYEMA
  11. TEICOPLANIN [Concomitant]
     Active Substance: TEICOPLANIN
     Dosage: UNK
  12. NOREPINEPHRINE. [Concomitant]
     Active Substance: NOREPINEPHRINE
     Dosage: UNK
  13. AVIBACTAM SODIUM/CEFTAZIDIME PENTAHYDRATE [Suspect]
     Active Substance: AVIBACTAM SODIUM\CEFTAZIDIME
     Indication: PNEUMONIA
     Dosage: UNK
     Dates: start: 20170105
  14. AMIKACIN. [Suspect]
     Active Substance: AMIKACIN
     Indication: EVIDENCE BASED TREATMENT
  15. INSULIN [Concomitant]
     Active Substance: INSULIN NOS
     Dosage: UNK
  16. MEROPENEM. [Suspect]
     Active Substance: MEROPENEM
     Indication: EMPYEMA
  17. AMIKACIN. [Suspect]
     Active Substance: AMIKACIN
     Indication: PNEUMONIA
     Dosage: UNK (NEBULISED)
     Route: 042
     Dates: start: 20170105

REACTIONS (1)
  - Drug ineffective [Fatal]

NARRATIVE: CASE EVENT DATE: 20170105
